FAERS Safety Report 10071214 (Version 2)
Quarter: 2015Q1

REPORT INFORMATION
  Report Type: Report from Study
  Country: CA (occurrence: CA)
  Receive Date: 20140410
  Receipt Date: 20150119
  Transmission Date: 20150720
  Serious: Yes (Hospitalization, Other)
  Sender: FDA-Public Use
  Company Number: CA-ABBVIE-14P-028-1222263-00

PATIENT
  Age: 66 Year
  Sex: Male

DRUGS (1)
  1. HUMIRA [Suspect]
     Active Substance: ADALIMUMAB
     Indication: COLITIS ULCERATIVE
     Dosage: LOADING DOSE
     Route: 058
     Dates: start: 20140320, end: 20140320

REACTIONS (6)
  - Hypotension [Recovered/Resolved]
  - Muscular weakness [Recovered/Resolved]
  - Dizziness [Recovered/Resolved]
  - Post procedural complication [Recovered/Resolved]
  - Hypoaesthesia [Recovered/Resolved]
  - Coronary artery bypass [Unknown]

NARRATIVE: CASE EVENT DATE: 2014
